FAERS Safety Report 10800680 (Version 1)
Quarter: 2015Q1

REPORT INFORMATION
  Report Type: Spontaneous
  Country: US (occurrence: US)
  Receive Date: 20150216
  Receipt Date: 20150216
  Transmission Date: 20150721
  Serious: Yes (Death, Hospitalization)
  Sender: FDA-Public Use
  Company Number: US-GE HEALTHCARE MEDICAL DIAGNOSTICS-OMPQ-PR-1502S-0127

PATIENT
  Age: 79 Year
  Sex: Female

DRUGS (7)
  1. PLAVIX [Concomitant]
     Active Substance: CLOPIDOGREL BISULFATE
  2. PLETAL [Concomitant]
     Active Substance: CILOSTAZOL
  3. ATENOLOL. [Concomitant]
     Active Substance: ATENOLOL
  4. ASPIRIN. [Concomitant]
     Active Substance: ASPIRIN
  5. MULTIVITAMIN [Concomitant]
     Active Substance: VITAMINS
  6. OMNIPAQUE [Suspect]
     Active Substance: IOHEXOL
     Indication: DIAGNOSTIC PROCEDURE
  7. OMNIPAQUE [Suspect]
     Active Substance: IOHEXOL
     Indication: LEG AMPUTATION
     Route: 013
     Dates: start: 20140826, end: 20140826

REACTIONS (3)
  - Vomiting [Unknown]
  - Diarrhoea [Unknown]
  - Haemorrhage [Fatal]

NARRATIVE: CASE EVENT DATE: 20140826
